FAERS Safety Report 20819131 (Version 2)
Quarter: 2022Q2

REPORT INFORMATION
  Report Type: Other
  Country: US (occurrence: None)
  Receive Date: 20220512
  Receipt Date: 20220513
  Transmission Date: 20220721
  Serious: Yes (Hospitalization, Other)
  Sender: FDA-Public Use
  Company Number: US-ROCHE-3089732

PATIENT
  Age: 52 Year
  Sex: Female

DRUGS (22)
  1. OCREVUS [Suspect]
     Active Substance: OCRELIZUMAB
     Indication: Relapsing-remitting multiple sclerosis
     Dosage: (PRESCRIBED AS INFUSE 600 MG IV EVERY 6 MONTHS)?DATE OF TREATMENT: 09/OCT/2018, 18/JUN/2020, 16/DEC/
     Route: 065
     Dates: start: 201804
  2. OCREVUS [Suspect]
     Active Substance: OCRELIZUMAB
     Dosage: LAST DOSE
     Route: 065
     Dates: start: 20210708
  3. CYMBALTA [Concomitant]
     Active Substance: DULOXETINE HYDROCHLORIDE
  4. LYRICA [Concomitant]
     Active Substance: PREGABALIN
  5. ROBAXIN [Concomitant]
     Active Substance: METHOCARBAMOL
  6. TRAZODONE [Concomitant]
     Active Substance: TRAZODONE HYDROCHLORIDE
  7. BACLOFEN [Concomitant]
     Active Substance: BACLOFEN
  8. VENTOLIN HFA [Concomitant]
     Active Substance: ALBUTEROL SULFATE
  9. HYDROXYZINE [Concomitant]
     Active Substance: HYDROXYZINE HYDROCHLORIDE
  10. BUSPIRONE [Concomitant]
     Active Substance: BUSPIRONE HYDROCHLORIDE
  11. ERGOCALCIFEROL [Concomitant]
     Active Substance: ERGOCALCIFEROL
  12. NASOGEL [Concomitant]
  13. BIOTIN [Concomitant]
     Active Substance: BIOTIN
  14. ESTRADIOL [Concomitant]
     Active Substance: ESTRADIOL
  15. MORPHINE SULFATE [Concomitant]
     Active Substance: MORPHINE SULFATE
  16. BUPROPION HYDROCHLORIDE [Concomitant]
     Active Substance: BUPROPION HYDROCHLORIDE
  17. OMEPRAZOLE [Concomitant]
     Active Substance: OMEPRAZOLE
  18. METOPROLOL SUCCINATE [Concomitant]
     Active Substance: METOPROLOL SUCCINATE
  19. PROVENTIL HFA [Concomitant]
     Active Substance: ALBUTEROL SULFATE
  20. BENADRYL ALLERGY [Concomitant]
     Active Substance: DIPHENHYDRAMINE HYDROCHLORIDE
  21. VITAMIN C [Concomitant]
     Active Substance: ASCORBIC ACID
  22. MAGNESIUM [Concomitant]
     Active Substance: MAGNESIUM

REACTIONS (6)
  - COVID-19 [Recovered/Resolved]
  - Tracheal injury [Not Recovered/Not Resolved]
  - Urosepsis [Unknown]
  - Gait disturbance [Recovered/Resolved]
  - Speech disorder [Recovered/Resolved]
  - Mastication disorder [Recovered/Resolved]

NARRATIVE: CASE EVENT DATE: 20210816
